FAERS Safety Report 6547526-2 (Version None)
Quarter: 2010Q1

REPORT INFORMATION
  Report Type: 
  Country: None (occurrence: None)
  Receive Date: 20100122
  Receipt Date: 20100113
  Transmission Date: 20100710
  Serious: Yes (Hospitalization)
  Sender: FDA-Public Use
  Company Number: KZ-JNJFOC-20090608877

PATIENT
  Sex: Female
  Weight: 80 kg

DRUGS (1)
  1. PALIPERIDONE [Suspect]
     Indication: SCHIZOPHRENIA
     Route: 048

REACTIONS (2)
  - DELIRIUM [None]
  - SCHIZOAFFECTIVE DISORDER [None]
